FAERS Safety Report 14948082 (Version 1)
Quarter: 2018Q2

REPORT INFORMATION
  Report Type: Spontaneous
  Country: US (occurrence: US)
  Receive Date: 20180508
  Receipt Date: 20180508
  Transmission Date: 20180711
  Serious: No
  Sender: FDA-Public Use
  Company Number: None

PATIENT
  Sex: Female

DRUGS (2)
  1. HYDROXYCHLOROQUINE [Suspect]
     Active Substance: HYDROXYCHLOROQUINE
  2. TYLENOL [Suspect]
     Active Substance: ACETAMINOPHEN

REACTIONS (4)
  - Pain [None]
  - Drug ineffective [None]
  - Constipation [None]
  - Treatment failure [None]
